FAERS Safety Report 24430576 (Version 2)
Quarter: 2025Q1

REPORT INFORMATION
  Report Type: Report from Study
  Country: US (occurrence: US)
  Receive Date: 20241013
  Receipt Date: 20250117
  Transmission Date: 20250408
  Serious: Yes (Hospitalization, Other)
  Sender: JOHNSON AND JOHNSON
  Company Number: US-JNJFOC-20241029162

PATIENT
  Sex: Male
  Weight: 101.8 kg

DRUGS (2)
  1. TALQUETAMAB [Suspect]
     Active Substance: TALQUETAMAB
     Indication: Plasma cell myeloma
     Route: 065
     Dates: start: 20240923
  2. KPD [Concomitant]

REACTIONS (2)
  - Cytokine release syndrome [Unknown]
  - Plasmacytoma [Unknown]
